FAERS Safety Report 23644660 (Version 1)
Quarter: 2024Q1

REPORT INFORMATION
  Report Type: Spontaneous
  Country: US (occurrence: None)
  Receive Date: 20240318
  Receipt Date: 20240318
  Transmission Date: 20240410
  Serious: Yes (Hospitalization)
  Sender: FDA-Public Use
  Company Number: None

PATIENT
  Sex: Male

DRUGS (3)
  1. SKYRIZI [Suspect]
     Active Substance: RISANKIZUMAB-RZAA
     Indication: Crohn^s disease
     Dosage: OTHER FREQUENCY : EVERY 8 WEEKS; ?STRENGHT: 360MG/2.4M?
     Route: 058
     Dates: start: 202402
  2. CIPROFLOXACIN [Concomitant]
  3. FIDAXOMICIN [Concomitant]

REACTIONS (1)
  - Haematological infection [None]
